FAERS Safety Report 7035664-X (Version None)
Quarter: 2010Q4

REPORT INFORMATION
  Report Type: 
  Country: None (occurrence: None)
  Receive Date: 20101008
  Receipt Date: 20100928
  Transmission Date: 20110411
  Serious: Yes (Other)
  Sender: FDA-Public Use
  Company Number: US-MERCK-1009USA04476

PATIENT
  Age: 27 Year
  Sex: Female

DRUGS (5)
  1. SINGULAIR [Suspect]
     Indication: ASTHMA
     Route: 048
     Dates: start: 20100610, end: 20100921
  2. ADVAIR DISKUS 100/50 [Concomitant]
     Indication: ASTHMA
     Route: 065
  3. PROAIR (ALBUTEROL SULFATE) [Concomitant]
     Indication: ASTHMA
     Route: 065
  4. DECADRON [Concomitant]
     Indication: IMMUNODEFICIENCY COMMON VARIABLE
     Route: 065
  5. GAMMAGARD [Concomitant]
     Indication: IMMUNODEFICIENCY COMMON VARIABLE
     Route: 041

REACTIONS (2)
  - NIGHTMARE [None]
  - SUICIDAL IDEATION [None]
